FAERS Safety Report 17268126 (Version 1)
Quarter: 2020Q1

REPORT INFORMATION
  Report Type: Spontaneous
  Country: US (occurrence: US)
  Receive Date: 20191220
  Receipt Date: 20191220
  Transmission Date: 20200409
  Serious: Yes (Hospitalization)
  Sender: FDA-Public Use
  Company Number: None

PATIENT
  Sex: Male
  Weight: 70.7 kg

DRUGS (7)
  1. VINCRISTINE [Suspect]
     Active Substance: VINCRISTINE
  2. CYTARABINE (63878) [Suspect]
     Active Substance: CYTARABINE
  3. ERWINIA ASPARAGINASE [Suspect]
     Active Substance: ASPARAGINASE ERWINIA CHRYSANTHEMI
  4. HYDROCORTISONE. [Suspect]
     Active Substance: HYDROCORTISONE
  5. DEXAMETHASONE. [Suspect]
     Active Substance: DEXAMETHASONE
  6. METHOTREXATE. [Suspect]
     Active Substance: METHOTREXATE
  7. MITOXANTRONE HYDROCHLORIDE. [Suspect]
     Active Substance: MITOXANTRONE HYDROCHLORIDE

REACTIONS (15)
  - Pleural effusion [None]
  - Multiple organ dysfunction syndrome [None]
  - Colitis [None]
  - Haemofiltration [None]
  - Hepatic function abnormal [None]
  - Pneumoperitoneum [None]
  - International normalised ratio increased [None]
  - Neutropenia [None]
  - General physical health deterioration [None]
  - Platelet count decreased [None]
  - Depressed level of consciousness [None]
  - Sepsis [None]
  - Coagulopathy [None]
  - Peritonitis [None]
  - Acute kidney injury [None]

NARRATIVE: CASE EVENT DATE: 20191021
